FAERS Safety Report 18164627 (Version 2)
Quarter: 2020Q3

REPORT INFORMATION
  Report Type: Spontaneous
  Country: SG (occurrence: SG)
  Receive Date: 20200818
  Receipt Date: 20200820
  Transmission Date: 20201103
  Serious: Yes (Other)
  Sender: FDA-Public Use
  Company Number: NVSC2020SG225967

PATIENT
  Sex: Male

DRUGS (1)
  1. MEKINIST [Suspect]
     Active Substance: TRAMETINIB DIMETHYL SULFOXIDE
     Indication: PANCREATIC CARCINOMA
     Dosage: 2 MG, QD
     Route: 048
     Dates: start: 20200315, end: 20200715

REACTIONS (3)
  - Malignant neoplasm progression [Not Recovered/Not Resolved]
  - Off label use [Unknown]
  - Pancreatic carcinoma [Not Recovered/Not Resolved]
